FAERS Safety Report 14312417 (Version 12)
Quarter: 2019Q1

REPORT INFORMATION
  Report Type: Spontaneous
  Country: DE (occurrence: DE)
  Receive Date: 20171221
  Receipt Date: 20190116
  Transmission Date: 20190417
  Serious: Yes (Death, Hospitalization, Other)
  Sender: FDA-Public Use
  Company Number: DE-AUROBINDO-AUR-APL-2017-45285

PATIENT
  Age: 78 Year
  Sex: Male

DRUGS (57)
  1. AMPICILLIN AND SULBACTAM [Suspect]
     Active Substance: AMPICILLIN SODIUM\SULBACTAM SODIUM
     Dosage: UNK
     Dates: start: 20160101
  2. DEXTROMETHORPHAN [Suspect]
     Active Substance: DEXTROMETHORPHAN
     Indication: AGGRESSION
     Dosage: 40 MG, DIVIDED INTO 2 DOSAGES
     Route: 065
     Dates: start: 2017
  3. FLUPENTIXOL [Suspect]
     Active Substance: FLUPENTIXOL
     Indication: DEMENTIA WITH LEWY BODIES
     Dosage: AS HIGH AS TOLERATED
     Route: 048
  4. FLUPENTIXOL [Suspect]
     Active Substance: FLUPENTIXOL
     Indication: PARANOIA
  5. DRONABINOL. [Suspect]
     Active Substance: DRONABINOL
     Indication: AGGRESSION
     Dosage: 2.5 MILLIGRAM, ONCE A DAY
     Route: 065
     Dates: start: 20160101
  6. RIVASTIGMINE. [Concomitant]
     Active Substance: RIVASTIGMINE
     Indication: DEMENTIA WITH LEWY BODIES
  7. DONEPEZIL. [Concomitant]
     Active Substance: DONEPEZIL
     Indication: DELIRIUM
     Dosage: UNK ()
  8. LORAZEPAM. [Suspect]
     Active Substance: LORAZEPAM
     Indication: AGITATION
  9. LORAZEPAM. [Suspect]
     Active Substance: LORAZEPAM
     Indication: AGGRESSION
  10. FORMOTEROL FUMARATE [Suspect]
     Active Substance: FORMOTEROL FUMARATE
     Indication: PNEUMONIA
     Dosage: 20 MG, QD
     Route: 065
     Dates: start: 201601
  11. DEXTROMETHORPHAN [Suspect]
     Active Substance: DEXTROMETHORPHAN
     Indication: DELIRIUM
     Dosage: 24 MILLIGRAM
     Route: 065
  12. RIVASTIGMINE. [Concomitant]
     Active Substance: RIVASTIGMINE
     Indication: AGITATION
  13. DIAZEPAM. [Concomitant]
     Active Substance: DIAZEPAM
     Indication: DELIRIUM
  14. MIRTAZAPINE. [Concomitant]
     Active Substance: MIRTAZAPINE
     Indication: AGGRESSION
  15. CLOZAPINE. [Concomitant]
     Active Substance: CLOZAPINE
     Indication: PRODUCT USED FOR UNKNOWN INDICATION
     Dosage: UNK
     Route: 065
  16. CARBAMAZEPIN [Concomitant]
     Active Substance: CARBAMAZEPINE
     Indication: AGGRESSION
  17. ZUCLOPENTHIXOL [Concomitant]
     Active Substance: ZUCLOPENTHIXOL
     Indication: PRODUCT USED FOR UNKNOWN INDICATION
     Dosage: UNK
     Route: 065
  18. PAROXETINE. [Concomitant]
     Active Substance: PAROXETINE
     Indication: PRODUCT USED FOR UNKNOWN INDICATION
     Dosage: 24 MILLIGRAM
     Route: 065
     Dates: start: 20170101
  19. AMPICILLIN AND SULBACTAM [Suspect]
     Active Substance: AMPICILLIN SODIUM\SULBACTAM SODIUM
     Indication: PNEUMONIA
     Dosage: UNK
     Route: 065
     Dates: start: 201601
  20. LORAZEPAM. [Suspect]
     Active Substance: LORAZEPAM
     Indication: DELIRIUM
     Dosage: UNK UNK, QD
     Route: 065
     Dates: start: 2016
  21. DEXTROMETHORPHAN [Suspect]
     Active Substance: DEXTROMETHORPHAN
     Dosage: 24 MILLIGRAM, DAILY
     Route: 065
     Dates: start: 20170101
  22. FLUPENTIXOL [Suspect]
     Active Substance: FLUPENTIXOL
     Indication: AGGRESSION
     Dosage: 20 MG/D
     Route: 048
  23. FLUPENTIXOL [Suspect]
     Active Substance: FLUPENTIXOL
     Indication: PNEUMONIA
     Dosage: UNK UNK,UNK
     Route: 048
  24. FLUPENTIXOL [Suspect]
     Active Substance: FLUPENTIXOL
     Indication: POOR QUALITY SLEEP
  25. DRONABINOL. [Suspect]
     Active Substance: DRONABINOL
     Indication: DEMENTIA WITH LEWY BODIES
     Dosage: 15 MG,QD
     Route: 065
     Dates: start: 20160101
  26. DONEPEZIL. [Concomitant]
     Active Substance: DONEPEZIL
     Indication: AGGRESSION
     Dosage: UNK
     Route: 065
  27. MIRTAZAPINE. [Concomitant]
     Active Substance: MIRTAZAPINE
     Indication: DELIRIUM
     Dosage: (HIGH DOSE)
     Route: 065
  28. BENPERIDOL [Concomitant]
     Active Substance: BENPERIDOL
     Indication: PRODUCT USED FOR UNKNOWN INDICATION
     Dosage: UNK
     Route: 065
  29. RISPERIDONE. [Concomitant]
     Active Substance: RISPERIDONE
     Indication: PRODUCT USED FOR UNKNOWN INDICATION
     Dosage: UNK
     Route: 065
  30. QUETIAPINE. [Suspect]
     Active Substance: QUETIAPINE
     Indication: DEMENTIA WITH LEWY BODIES
     Dosage: AS HIGH AS TOLERATED BY THE PATIENT
     Route: 048
     Dates: start: 20160101
  31. PAROXETINE. [Suspect]
     Active Substance: PAROXETINE
     Indication: AGITATION
  32. LORAZEPAM. [Suspect]
     Active Substance: LORAZEPAM
     Indication: DEMENTIA WITH LEWY BODIES
     Dosage: UNK, QD
     Route: 065
     Dates: start: 20160101
  33. DIAZEPAM. [Concomitant]
     Active Substance: DIAZEPAM
     Indication: AGGRESSION
     Dosage: (HIGH DOSE)
     Route: 065
  34. TRAZODONE [Concomitant]
     Active Substance: TRAZODONE HYDROCHLORIDE
     Indication: DELIRIUM
     Dosage: (HIGH DOSE)
     Route: 065
  35. AMISULPRIDE [Concomitant]
     Active Substance: AMISULPRIDE
     Indication: PRODUCT USED FOR UNKNOWN INDICATION
     Dosage: UNK
     Route: 065
  36. PIPAMPERONE [Concomitant]
     Active Substance: PIPAMPERONE
     Indication: PRODUCT USED FOR UNKNOWN INDICATION
     Dosage: UNK
     Route: 065
  37. ARIPIPRAZOLE. [Concomitant]
     Active Substance: ARIPIPRAZOLE
     Indication: PRODUCT USED FOR UNKNOWN INDICATION
     Dosage: UNK
     Route: 065
  38. QUETIAPINE. [Suspect]
     Active Substance: QUETIAPINE
     Dosage: 150 MILLIGRAM, DAILY
     Route: 048
     Dates: start: 2016
  39. QUETIAPINE. [Suspect]
     Active Substance: QUETIAPINE
     Dosage: 100 MG/D (FINAL DOSE)
     Route: 048
     Dates: start: 2017
  40. QUETIAPINE. [Suspect]
     Active Substance: QUETIAPINE
     Dosage: 100 MG, QD
     Route: 065
     Dates: start: 2017
  41. PAROXETINE. [Suspect]
     Active Substance: PAROXETINE
     Indication: DELIRIUM
     Dosage: 10 MG, QD
     Route: 065
     Dates: start: 20170101
  42. DEXTROMETHORPHAN [Suspect]
     Active Substance: DEXTROMETHORPHAN
     Indication: AGITATION
     Dosage: DOSE INCREASED, TWO DIVIDED DOSES
     Route: 065
     Dates: start: 2017
  43. DRONABINOL. [Suspect]
     Active Substance: DRONABINOL
     Indication: DELIRIUM
     Dosage: 15 MG, UNK
     Route: 065
     Dates: start: 20160201
  44. DRONABINOL. [Suspect]
     Active Substance: DRONABINOL
     Indication: DELIRIUM
     Dosage: UNK
     Route: 065
     Dates: start: 20160101
  45. RIVASTIGMINE. [Concomitant]
     Active Substance: RIVASTIGMINE
     Indication: DELIRIUM
  46. DONEPEZIL. [Concomitant]
     Active Substance: DONEPEZIL
     Indication: DEMENTIA WITH LEWY BODIES
  47. QUETIAPINE. [Suspect]
     Active Substance: QUETIAPINE
     Dosage: 100 MG, QD
     Route: 065
     Dates: start: 20170101
  48. PAROXETINE. [Suspect]
     Active Substance: PAROXETINE
     Indication: AGGRESSION
     Dosage: 10 MG, QD
     Route: 065
     Dates: start: 2017
  49. FLUPENTIXOL [Suspect]
     Active Substance: FLUPENTIXOL
     Indication: DELIRIUM
     Dosage: 20 MG,QD
     Route: 048
  50. RIVASTIGMINE. [Concomitant]
     Active Substance: RIVASTIGMINE
     Indication: AGGRESSION
     Dosage: QD
     Route: 065
  51. TRAZODONE [Concomitant]
     Active Substance: TRAZODONE HYDROCHLORIDE
     Indication: AGGRESSION
  52. QUETIAPINE. [Suspect]
     Active Substance: QUETIAPINE
     Dosage: (HIGH DOSE) (1)
     Route: 048
     Dates: start: 2016
  53. QUETIAPINE. [Suspect]
     Active Substance: QUETIAPINE
     Dosage: AS HIGH AS TOLERATED
     Route: 065
  54. SPIRIVA [Suspect]
     Active Substance: TIOTROPIUM BROMIDE MONOHYDRATE
     Indication: PNEUMONIA
     Dosage: UNK
     Route: 065
     Dates: start: 201601
  55. FLUPENTIXOL [Suspect]
     Active Substance: FLUPENTIXOL
     Indication: AGITATION
  56. FLUPENTIXOL [Suspect]
     Active Substance: FLUPENTIXOL
     Indication: HANGOVER
  57. CARBAMAZEPIN [Concomitant]
     Active Substance: CARBAMAZEPINE
     Indication: DEMENTIA WITH LEWY BODIES
     Dosage: UNK
     Route: 065

REACTIONS (14)
  - Completed suicide [Fatal]
  - Fatigue [Fatal]
  - Off label use [Fatal]
  - Sleep disorder [Fatal]
  - Paranoia [Fatal]
  - Rebound effect [Fatal]
  - Aggression [Fatal]
  - Paradoxical drug reaction [Fatal]
  - Withdrawal syndrome [Fatal]
  - Agitation [Fatal]
  - Delirium [Fatal]
  - Condition aggravated [Fatal]
  - Hangover [Fatal]
  - Product use in unapproved indication [Unknown]

NARRATIVE: CASE EVENT DATE: 201601
